FAERS Safety Report 8944803 (Version 1)
Quarter: 2012Q4

REPORT INFORMATION
  Report Type: 
  Country: US (occurrence: US)
  Receive Date: 20121204
  Receipt Date: 20121204
  Transmission Date: 20130627
  Serious: No
  Sender: FDA-Public Use
  Company Number: US-AMGEN-USASP2012059735

PATIENT
  Age: 51 Year
  Sex: Female

DRUGS (7)
  1. ENBREL [Suspect]
     Indication: RHEUMATOID ARTHRITIS
     Dosage: 50 mg/ml, qwk
     Route: 058
     Dates: start: 20111115
  2. IBUPROFEN [Concomitant]
     Dosage: 200 ng, qd as needed
     Route: 048
  3. VITAMIN D /00107901/ [Concomitant]
     Dosage: 1000 unit, qd
     Route: 048
  4. VICODIN [Concomitant]
     Indication: PAIN
     Dosage: one tablet as needed
     Route: 048
  5. PRILOSEC                           /00661201/ [Concomitant]
     Dosage: 20 mg, qd
     Route: 048
  6. FOLIC ACID [Concomitant]
     Dosage: 1 mg, qd
     Route: 048
  7. METHOTREXATE [Concomitant]
     Dosage: 2.5 mg, qwk
     Route: 048

REACTIONS (5)
  - Tooth infection [Recovered/Resolved]
  - Tooth disorder [Not Recovered/Not Resolved]
  - Swelling face [Not Recovered/Not Resolved]
  - Facial pain [Not Recovered/Not Resolved]
  - Endodontic procedure [Recovered/Resolved]
